FAERS Safety Report 8435379-7 (Version None)
Quarter: 2012Q2

REPORT INFORMATION
  Report Type: 
  Country: None (occurrence: None)
  Receive Date: 20120614
  Receipt Date: 20120608
  Transmission Date: 20120825
  Serious: Yes (Other)
  Sender: FDA-Public Use
  Company Number: PHHY2012BR049932

PATIENT
  Sex: Female

DRUGS (2)
  1. DIOVAN AMLO FIX [Suspect]
     Indication: HYPERTENSION
     Dosage: 1 DF (320/5 MG), DAILY
     Route: 048
  2. RASILEZ [Suspect]
     Indication: HYPERTENSION
     Dosage: 300 MG, DAILY
     Route: 048

REACTIONS (3)
  - ARRHYTHMIA [None]
  - BLOOD PRESSURE INADEQUATELY CONTROLLED [None]
  - ABDOMINAL PAIN UPPER [None]
